FAERS Safety Report 21563924 (Version 2)
Quarter: 2022Q4

REPORT INFORMATION
  Report Type: Spontaneous
  Country: US (occurrence: US)
  Receive Date: 20221108
  Receipt Date: 20221222
  Transmission Date: 20230112
  Serious: Yes (Other)
  Sender: FDA-Public Use
  Company Number: US-NOVOPROD-976016

PATIENT
  Sex: Female

DRUGS (1)
  1. LEVEMIR [Suspect]
     Active Substance: INSULIN DETEMIR
     Indication: Gestational diabetes
     Dosage: 33 IU, QD (15 UNITS IN THE MORNING AND18 UNITS AND NIGHT)
     Route: 058
     Dates: start: 20220724

REACTIONS (4)
  - High risk pregnancy [Unknown]
  - Device failure [Unknown]
  - Blood glucose fluctuation [Unknown]
  - Maternal exposure during pregnancy [Unknown]
